FAERS Safety Report 10759499 (Version 3)
Quarter: 2015Q2

REPORT INFORMATION
  Report Type: Spontaneous
  Country: US (occurrence: US)
  Receive Date: 20150203
  Receipt Date: 20150512
  Transmission Date: 20150821
  Serious: No
  Sender: FDA-Public Use
  Company Number: US-GLAXOSMITHKLINE-US2014GSK049134

PATIENT
  Sex: Male
  Weight: 83.45 kg

DRUGS (4)
  1. VOTRIENT [Suspect]
     Active Substance: PAZOPANIB HYDROCHLORIDE
     Indication: RENAL CELL CARCINOMA
     Dosage: 800 MG, QD
     Route: 065
     Dates: start: 201306
  2. MULTIVITAMIN [Concomitant]
     Active Substance: VITAMINS
  3. FLAXSEED [Concomitant]
     Active Substance: FLAX SEED
  4. VOTRIENT [Suspect]
     Active Substance: PAZOPANIB HYDROCHLORIDE
     Dosage: 600 MG, QD
     Route: 065
     Dates: start: 201406

REACTIONS (13)
  - Liver disorder [Unknown]
  - Decreased appetite [Unknown]
  - Skin discolouration [Unknown]
  - Nausea [Unknown]
  - Vomiting [Unknown]
  - Abdominal discomfort [Unknown]
  - Hair colour changes [Unknown]
  - Thyroid disorder [Unknown]
  - Diarrhoea [Unknown]
  - Constipation [Unknown]
  - Hypertension [Unknown]
  - Neuropathy peripheral [Unknown]
  - Fatigue [Unknown]
